FAERS Safety Report 8795695 (Version 2)
Quarter: 2013Q1

REPORT INFORMATION
  Report Type: Report from Study
  Country: DE (occurrence: DE)
  Receive Date: 20120920
  Receipt Date: 20130116
  Transmission Date: 20140127
  Serious: Yes (Hospitalization, Other)
  Sender: FDA-Public Use
  Company Number: DE-MPIJNJ-2012-05138

PATIENT
  Sex: 0

DRUGS (2)
  1. VELCADE [Suspect]
     Indication: PLASMA CELL MYELOMA
     Dosage: 2.19 MG, UNK
     Route: 065
     Dates: start: 20120709, end: 20120712
  2. VELCADE [Suspect]
     Dosage: 2.19 MG, UNK
     Route: 065
     Dates: start: 20120719

REACTIONS (3)
  - Pneumonia [Recovered/Resolved]
  - Anaemia [Recovered/Resolved]
  - Candida infection [Recovered/Resolved]
